FAERS Safety Report 13292333 (Version 1)
Quarter: 2017Q1

REPORT INFORMATION
  Report Type: Spontaneous
  Country: US (occurrence: US)
  Receive Date: 20170302
  Receipt Date: 20170302
  Transmission Date: 20170428
  Serious: Yes (Hospitalization)
  Sender: FDA-Public Use
  Company Number: None

PATIENT
  Age: 89 Year
  Sex: Male
  Weight: 72.7 kg

DRUGS (1)
  1. WARFARIN [Suspect]
     Active Substance: WARFARIN
     Indication: ATRIAL FIBRILLATION
     Dosage: MG EVERY DAY PO
     Route: 048
     Dates: start: 20001024, end: 20170302

REACTIONS (5)
  - Toxicity to various agents [None]
  - Gastrointestinal haemorrhage [None]
  - Urinary tract infection [None]
  - Gastrointestinal disorder [None]
  - Gastric haemorrhage [None]

NARRATIVE: CASE EVENT DATE: 20170129
